FAERS Safety Report 18048552 (Version 1)
Quarter: 2020Q3

REPORT INFORMATION
  Report Type: Report from Study
  Country: EC (occurrence: EC)
  Receive Date: 20200721
  Receipt Date: 20200721
  Transmission Date: 20201103
  Serious: Yes (Hospitalization)
  Sender: FDA-Public Use
  Company Number: NVSC2020EC203992

PATIENT
  Age: 46 Year
  Sex: Male

DRUGS (4)
  1. TASIGNA [Suspect]
     Active Substance: NILOTINIB
     Indication: CHRONIC MYELOID LEUKAEMIA
     Dosage: 200 MG, BID
     Route: 048
     Dates: start: 20150415, end: 20150901
  2. LOSARTAN. [Concomitant]
     Active Substance: LOSARTAN
     Indication: HYPERTENSION
     Dosage: 50 MG, QD (1 IN MORNING)
     Route: 065
  3. TASIGNA [Suspect]
     Active Substance: NILOTINIB
     Dosage: 400 MG, QMO
     Route: 048
     Dates: start: 20151020, end: 20180103
  4. TASIGNA [Suspect]
     Active Substance: NILOTINIB
     Dosage: 400 MG, BID
     Route: 048
     Dates: start: 20190110, end: 20200404

REACTIONS (3)
  - Splenomegaly [Unknown]
  - Angina pectoris [Unknown]
  - Inappropriate schedule of product administration [Unknown]

NARRATIVE: CASE EVENT DATE: 20151020
